FAERS Safety Report 5474297-3 (Version None)
Quarter: 2007Q4

REPORT INFORMATION
  Report Type: 
  Country: None (occurrence: None)
  Receive Date: 20071002
  Receipt Date: 20070705
  Transmission Date: 20080405
  Serious: No
  Sender: FDA-Public Use
  Company Number: US-ASTRAZENECA-2007UW15836

PATIENT
  Age: 88 Year
  Sex: Female

DRUGS (4)
  1. ARIMIDEX [Suspect]
     Indication: BREAST CANCER
     Route: 048
  2. COUMADIN [Concomitant]
  3. TENORMIN [Concomitant]
  4. COZAAR [Concomitant]

REACTIONS (1)
  - MIGRAINE [None]
